FAERS Safety Report 9204351 (Version 1)
Quarter: 2013Q2

REPORT INFORMATION
  Report Type: Spontaneous
  Country: US (occurrence: None)
  Receive Date: 20130401
  Receipt Date: 20130401
  Transmission Date: 20140414
  Serious: Yes (Hospitalization)
  Sender: FDA-Public Use
  Company Number: None

PATIENT
  Sex: Female

DRUGS (1)
  1. NTG DEEP CLEAN FACIAL CLEANSER [Suspect]
     Indication: REMOVAL OF INERT MATTER FROM SKIN OR SUBCUTANEOUS TISSUE
     Dosage: UNK, 5X WEEK, TOPICAL
     Route: 061
     Dates: start: 201303

REACTIONS (3)
  - Thermal burn [None]
  - Erythema [None]
  - Burning sensation [None]
